FAERS Safety Report 4663233-5 (Version None)
Quarter: 2005Q2

REPORT INFORMATION
  Report Type: 
  Country: None (occurrence: None)
  Receive Date: 20050513
  Receipt Date: 20050503
  Transmission Date: 20051028
  Serious: Yes (Hospitalization)
  Sender: FDA-Public Use
  Company Number: GXKR2005GB00985

PATIENT
  Age: 85 Year
  Sex: Male

DRUGS (12)
  1. CO-AMOXICLAV (NGX) (AMOXICILLIN, CLAVULANATE) [Suspect]
     Indication: URINARY TRACT INFECTION
     Dosage: 375 MG, TID, ORAL
     Route: 048
     Dates: start: 20050301, end: 20050301
  2. TRIMETHOPRIM [Suspect]
     Indication: URINARY TRACT INFECTION
     Dosage: 200 MG, BID, ORAL
     Route: 048
     Dates: start: 20050301, end: 20050301
  3. WARFARIN SODIUM [Concomitant]
  4. NEBIVOLOL (NEBIVOLOL) [Concomitant]
  5. ASPIRIN [Concomitant]
  6. SODIUM BICARBONATE IN PLASTIC CONTAINER [Concomitant]
  7. BUMETANIDE [Concomitant]
  8. CO-DYDRAMOL (DIHYDROCODEINE BITARTRATE, PARACETAMOL) [Concomitant]
  9. SEVELAMER (SEVELAMER) [Concomitant]
  10. OXYBUTYNIN CHLORIDE [Concomitant]
  11. SENNA (SENNA) [Concomitant]
  12. NEORECORMON ^ROCHE^ (EPOETIN BETA) [Concomitant]

REACTIONS (6)
  - BLOOD CREATININE INCREASED [None]
  - HAEMATOCHEZIA [None]
  - INTERNATIONAL NORMALISED RATIO INCREASED [None]
  - MALAISE [None]
  - MELAENA [None]
  - URINE ANALYSIS ABNORMAL [None]
